FAERS Safety Report 16168990 (Version 3)
Quarter: 2019Q2

REPORT INFORMATION
  Report Type: Spontaneous
  Country: US (occurrence: US)
  Receive Date: 20190408
  Receipt Date: 20190522
  Transmission Date: 20190711
  Serious: Yes (Other)
  Sender: FDA-Public Use
  Company Number: US-BAYER-2019-062481

PATIENT
  Age: 27 Year
  Sex: Female

DRUGS (1)
  1. KYLEENA [Suspect]
     Active Substance: LEVONORGESTREL
     Indication: CONTRACEPTION
     Dosage: 17.5 MCG/24HR, CONT
     Route: 015
     Dates: start: 20181219, end: 20190304

REACTIONS (10)
  - Back pain [None]
  - Device expulsion [Recovered/Resolved]
  - Device issue [None]
  - Genital haemorrhage [Recovered/Resolved]
  - Pelvic pain [None]
  - Medical device pain [Not Recovered/Not Resolved]
  - Medical device discomfort [None]
  - Abdominal pain lower [None]
  - Abdominal pain [None]
  - Abdominal pain upper [None]

NARRATIVE: CASE EVENT DATE: 201902
